FAERS Safety Report 4732287-X (Version None)
Quarter: 2005Q3

REPORT INFORMATION
  Report Type: 
  Country: None (occurrence: None)
  Receive Date: 20050726
  Receipt Date: 20040213
  Transmission Date: 20060218
  Serious: Yes (Hospitalization)
  Sender: FDA-Public Use
  Company Number: 04FRA0078

PATIENT
  Age: 74 Year
  Sex: Female

DRUGS (3)
  1. INJ TIROFIBAN HCL (TIROFIBIAN HYDROCHLORIDE) (INJECTION) [Suspect]
     Indication: ANGINA UNSTABLE
     Dates: start: 20031107, end: 20031107
  2. AGGRASTAT [Suspect]
     Dosage: INTRAVENOUS
     Route: 042
     Dates: start: 20031107, end: 20031107
  3. ENOXAPARIN SODIUM [Concomitant]

REACTIONS (1)
  - THROMBOCYTOPENIA [None]
